FAERS Safety Report 12509109 (Version 1)
Quarter: 2016Q2

REPORT INFORMATION
  Report Type: Spontaneous
  Country: US (occurrence: US)
  Receive Date: 20160629
  Receipt Date: 20160629
  Transmission Date: 20160815
  Serious: No
  Sender: FDA-Public Use
  Company Number: US-PFIZER INC-2016308578

PATIENT
  Age: 81 Year
  Sex: Female

DRUGS (10)
  1. MORPHINE SULFATE. [Suspect]
     Active Substance: MORPHINE SULFATE
  2. CELECOXIB. [Suspect]
     Active Substance: CELECOXIB
  3. GABAPENTIN. [Suspect]
     Active Substance: GABAPENTIN
  4. SOMA [Suspect]
     Active Substance: CARISOPRODOL
  5. CARISOPRODOL. [Suspect]
     Active Substance: CARISOPRODOL
  6. POVIDONE-IODINE. [Suspect]
     Active Substance: POVIDONE-IODINE
  7. CELEBREX [Suspect]
     Active Substance: CELECOXIB
  8. LOPID [Suspect]
     Active Substance: GEMFIBROZIL
  9. GEMFIBROZIL. [Suspect]
     Active Substance: GEMFIBROZIL
  10. IODINE. [Suspect]
     Active Substance: IODINE

REACTIONS (1)
  - Drug hypersensitivity [Unknown]
